FAERS Safety Report 5526744-6 (Version None)
Quarter: 2007Q4

REPORT INFORMATION
  Report Type: 
  Country: None (occurrence: None)
  Receive Date: 20071120
  Receipt Date: 20071001
  Transmission Date: 20080405
  Serious: Yes (Other)
  Sender: FDA-Public Use
  Company Number: 2007060064

PATIENT
  Age: 54 Year
  Sex: Male
  Weight: 106.3 kg

DRUGS (20)
  1. TIKOSYN [Suspect]
     Indication: ATRIAL FLUTTER
     Dosage: 1000 MCG (500 MCG,2 IN 1 D) ; 500 MCG (250 MCG,2 IN 1 D) ; 250 MCG (125 MCG,2 IN 1 D)
     Dates: start: 20070713
  2. TIKOSYN [Suspect]
     Indication: ATRIAL FLUTTER
     Dosage: 1000 MCG (500 MCG,2 IN 1 D) ; 500 MCG (250 MCG,2 IN 1 D) ; 250 MCG (125 MCG,2 IN 1 D)
     Dates: start: 20070715
  3. TIKOSYN [Suspect]
     Indication: ATRIAL FLUTTER
     Dosage: 1000 MCG (500 MCG,2 IN 1 D) ; 500 MCG (250 MCG,2 IN 1 D) ; 250 MCG (125 MCG,2 IN 1 D)
     Dates: start: 20070716
  4. LASIX [Concomitant]
  5. POTASSIUM (POTASSIUM) [Concomitant]
  6. CRESTOR [Concomitant]
  7. ACTOS [Concomitant]
  8. GLIBENCLAMIDE/METFORMIN (GLIBENCLAMIDE, METFORMIN) [Concomitant]
  9. COREG [Concomitant]
  10. KLONOPIN [Concomitant]
  11. WARFARIN SODIUM [Concomitant]
  12. FISH OIL (FISH OIL) [Concomitant]
  13. SITAGLIPTIN (SITAGLIPTIN) [Concomitant]
  14. CHONDROITIN/GLUCOSAMINE (CHONDROITIN, GLUCOSAMINE) [Concomitant]
  15. CHANTIX [Concomitant]
  16. MONTELUKAST SODIUM [Concomitant]
  17. NASONEX [Concomitant]
  18. IRON (IRON) [Concomitant]
  19. PLAVIX [Concomitant]
  20. CELEBREX [Concomitant]

REACTIONS (3)
  - BLOOD CREATININE INCREASED [None]
  - BLOOD PRESSURE INCREASED [None]
  - ELECTROCARDIOGRAM QT PROLONGED [None]
